FAERS Safety Report 6308901-4 (Version None)
Quarter: 2009Q3

REPORT INFORMATION
  Report Type: 
  Country: None (occurrence: None)
  Receive Date: 20090813
  Receipt Date: 20090303
  Transmission Date: 20100115
  Serious: Yes (Other)
  Sender: FDA-Public Use
  Company Number: US-ALLERGAN-0902264US

PATIENT
  Age: 77 Year
  Sex: Female

DRUGS (12)
  1. COMBIGAN [Suspect]
     Indication: GLAUCOMA
     Dosage: UNK, BID
     Route: 047
     Dates: start: 20090101, end: 20090224
  2. METHYLPREDNISOLONE 4MG TAB [Concomitant]
     Indication: ARTHRITIS
     Dosage: 30 MG, QD
  3. METHYLPREDNISOLONE 4MG TAB [Concomitant]
     Dosage: 28 MG, QD
  4. METHYLPREDNISOLONE 4MG TAB [Concomitant]
     Dosage: 26 MG, QD
  5. GLYBURIDE [Concomitant]
     Indication: TYPE 2 DIABETES MELLITUS
     Dosage: 5 MG, QD
  6. ALPRAZOLAM [Concomitant]
     Dosage: 0.25 MG, PRN
  7. MICARDIS [Concomitant]
     Indication: HYPERTENSION
     Dosage: 10 MG, QD
  8. TRIAMTERENE AND HYDROCHLOROTHIAZIDE [Concomitant]
     Indication: HYPERTENSION
     Dosage: 75/50 MG, QD
  9. METOPROLOL SUCCINATE [Concomitant]
     Dosage: 25 MG, QD
  10. WELLBUTRIN [Concomitant]
     Indication: DEPRESSION
     Dosage: 150 MG, QD
  11. ZOCOR [Concomitant]
     Indication: BLOOD CHOLESTEROL INCREASED
     Dosage: 10 MG, QD
  12. ALLOPURINOL [Concomitant]
     Indication: GOUT
     Dosage: 100 MG, BID

REACTIONS (3)
  - EYELID OEDEMA [None]
  - MUSCULAR WEAKNESS [None]
  - OCULAR HYPERAEMIA [None]
